FAERS Safety Report 16709807 (Version 1)
Quarter: 2019Q4

REPORT INFORMATION
  Report Type: Spontaneous
  Country: US (occurrence: US)
  Receive Date: 20190815
  Receipt Date: 20190815
  Transmission Date: 20200122
  Serious: Yes (Death)
  Sender: FDA-Public Use
  Company Number: None

PATIENT
  Age: 25 Year
  Sex: Male
  Weight: 67.5 kg

DRUGS (7)
  1. CELEXA ORAL 1000 [Concomitant]
  2. LORTAB 7.5MG [Concomitant]
  3. ATIVAN ORAL 1MG [Concomitant]
  4. SEROQUEL ORAL 100 MG [Concomitant]
  5. ROMAZICON [Suspect]
     Active Substance: FLUMAZENIL
     Indication: HEAD INJURY
     Dosage: ?          QUANTITY:1 INJECTION(S);?
     Route: 042
     Dates: start: 20101231, end: 20101231
  6. ROMAZICON [Suspect]
     Active Substance: FLUMAZENIL
     Indication: OVERDOSE
     Dosage: ?          QUANTITY:1 INJECTION(S);?
     Route: 042
     Dates: start: 20101231, end: 20101231
  7. SOMA ORAL 350 MG [Concomitant]

REACTIONS (4)
  - Hypotension [None]
  - Contraindicated product administered [None]
  - Heart rate increased [None]
  - Oxygen saturation decreased [None]

NARRATIVE: CASE EVENT DATE: 20101231
